FAERS Safety Report 6309089-6 (Version None)
Quarter: 2009Q3

REPORT INFORMATION
  Report Type: 
  Country: None (occurrence: None)
  Receive Date: 20090814
  Receipt Date: 20090810
  Transmission Date: 20100115
  Serious: Yes (Other)
  Sender: FDA-Public Use
  Company Number: US-TEVA-205449USA

PATIENT
  Age: 55 Year
  Sex: Male

DRUGS (2)
  1. SIMVASTATIN [Suspect]
     Indication: HYPERLIPIDAEMIA
     Route: 048
  2. SIMVASTATIN [Concomitant]

REACTIONS (1)
  - AMYOTROPHIC LATERAL SCLEROSIS [None]
